FAERS Safety Report 11898350 (Version 4)
Quarter: 2016Q1

REPORT INFORMATION
  Report Type: Report from Study
  Country: US (occurrence: US)
  Receive Date: 20160108
  Receipt Date: 20160330
  Transmission Date: 20160526
  Serious: Yes (Hospitalization, Other)
  Sender: FDA-Public Use
  Company Number: US-ACTELION-A-NJ2015-129397

PATIENT
  Age: 62 Year
  Sex: Male

DRUGS (4)
  1. VELETRI [Suspect]
     Active Substance: EPOPROSTENOL
     Indication: PORTOPULMONARY HYPERTENSION
     Dosage: 16 NG/KG, PER MIN
     Route: 042
     Dates: start: 20151223
  2. MACITENTAN [Suspect]
     Active Substance: MACITENTAN
     Indication: PORTOPULMONARY HYPERTENSION
     Dosage: 10 MG, QD
     Route: 048
     Dates: start: 20151105
  3. RIOCIGUAT [Concomitant]
     Active Substance: RIOCIGUAT
  4. REMODULIN [Concomitant]
     Active Substance: TREPROSTINIL

REACTIONS (9)
  - Device issue [Unknown]
  - Blood bilirubin increased [Not Recovered/Not Resolved]
  - Heart rate increased [Unknown]
  - Atrial fibrillation [Unknown]
  - Renal failure [Unknown]
  - Catheter site haemorrhage [Unknown]
  - Hepatic failure [Unknown]
  - Pain in jaw [Unknown]
  - Weight decreased [Unknown]
